FAERS Safety Report 5163527-3 (Version None)
Quarter: 2006Q4

REPORT INFORMATION
  Report Type: 
  Country: None (occurrence: None)
  Receive Date: 20061124
  Receipt Date: 20061113
  Transmission Date: 20070319
  Serious: Yes (Other)
  Sender: FDA-Public Use
  Company Number: 2006141015

PATIENT
  Age: 44 Year
  Sex: Female
  Weight: 46.2669 kg

DRUGS (3)
  1. ZOLOFT [Suspect]
     Indication: DEPRESSION
     Dosage: 100 MG (100 MG, 1 IN 1 D), ORAL
     Route: 048
     Dates: start: 19950101, end: 20060901
  2. LITHIUM CARBONATE [Concomitant]
  3. CLONAZEPAM [Concomitant]

REACTIONS (16)
  - ABNORMAL BEHAVIOUR [None]
  - AGGRESSION [None]
  - AGITATION [None]
  - AKATHISIA [None]
  - AMNESIA [None]
  - ANGER [None]
  - CONTUSION [None]
  - DISINHIBITION [None]
  - HOMICIDAL IDEATION [None]
  - INSOMNIA [None]
  - INTENTIONAL SELF-INJURY [None]
  - MENTAL DISORDER [None]
  - PAIN [None]
  - PERSONALITY CHANGE [None]
  - PHLEBITIS [None]
  - PHYSICAL ASSAULT [None]
